FAERS Safety Report 9680808 (Version 12)
Quarter: 2020Q4

REPORT INFORMATION
  Report Type: Report from Study
  Country: MX (occurrence: MX)
  Receive Date: 20131111
  Receipt Date: 20201120
  Transmission Date: 20210114
  Serious: Yes (Hospitalization, Other)
  Sender: FDA-Public Use
  Company Number: PHHY2013MX127427

PATIENT
  Age: 45 Year
  Sex: Female
  Weight: 52 kg

DRUGS (12)
  1. TEGRETOL [Suspect]
     Active Substance: CARBAMAZEPINE
     Indication: BIPOLAR DISORDER
     Dosage: 2.5 DF, QD (1 TABLET IN THE MORNING, HALF TABLET IN THE AFTERNOON AND 1 TABLET IN THE NIGHT)
     Route: 048
     Dates: start: 1994
  2. CARBAMAZEPINE. [Concomitant]
     Active Substance: CARBAMAZEPINE
     Indication: SCHIZOPHRENIFORM DISORDER
  3. TEGRETOL [Suspect]
     Active Substance: CARBAMAZEPINE
     Indication: MENTAL DISORDER
     Dosage: 3 DF, QD
     Route: 048
     Dates: start: 201207
  4. TEGRETOL [Suspect]
     Active Substance: CARBAMAZEPINE
     Indication: PSYCHOTIC DISORDER
     Dosage: 1 DF, TID
     Route: 048
  5. TEGRETOL [Suspect]
     Active Substance: CARBAMAZEPINE
     Indication: RESTLESSNESS
     Dosage: 3 DF, QD
     Route: 065
     Dates: start: 201109
  6. TEGRETOL [Suspect]
     Active Substance: CARBAMAZEPINE
     Indication: EPILEPSY
     Dosage: 4 DF, QD (200 MG)
     Route: 048
     Dates: start: 2012
  7. TEGRETOL [Suspect]
     Active Substance: CARBAMAZEPINE
     Indication: PARTIAL SEIZURES
     Dosage: UNK
     Route: 065
  8. TEGRETOL [Suspect]
     Active Substance: CARBAMAZEPINE
     Dosage: 3 DF, QD, SINCE SHE WAS 25 YR OLD
     Route: 048
  9. CARBAMAZEPINE. [Concomitant]
     Active Substance: CARBAMAZEPINE
     Indication: PSYCHOTIC DISORDER
  10. TEGRETOL [Suspect]
     Active Substance: CARBAMAZEPINE
     Indication: SCHIZOPHRENIFORM DISORDER
     Dosage: 1.5 DF, TID (1 1/2 (200 MG)
     Route: 048
  11. CARBAMAZEPINE. [Concomitant]
     Active Substance: CARBAMAZEPINE
     Indication: AFFECTIVE DISORDER
     Route: 065
  12. TEGRETOL [Suspect]
     Active Substance: CARBAMAZEPINE
     Indication: AFFECTIVE DISORDER
     Dosage: 1 DF, TID, WHEN SHE WAS 25 YEARS
     Route: 048

REACTIONS (42)
  - Food allergy [Not Recovered/Not Resolved]
  - Influenza [Recovered/Resolved]
  - Stress [Not Recovered/Not Resolved]
  - Weight increased [Not Recovered/Not Resolved]
  - Fatigue [Not Recovered/Not Resolved]
  - Accident [Recovered/Resolved]
  - Feeling abnormal [Not Recovered/Not Resolved]
  - Spinal pain [Recovered/Resolved]
  - Fall [Unknown]
  - Visual impairment [Not Recovered/Not Resolved]
  - Bipolar disorder [Unknown]
  - Impaired self-care [Unknown]
  - Anxiety [Not Recovered/Not Resolved]
  - Emotional disorder [Not Recovered/Not Resolved]
  - Accident [Recovered/Resolved]
  - Depressed mood [Not Recovered/Not Resolved]
  - Mental disorder [Recovered/Resolved with Sequelae]
  - Aggression [Recovered/Resolved with Sequelae]
  - Illness [Unknown]
  - Hypophagia [Not Recovered/Not Resolved]
  - Illness [Not Recovered/Not Resolved]
  - Back pain [Not Recovered/Not Resolved]
  - Drug ineffective [Not Recovered/Not Resolved]
  - Tooth loss [Unknown]
  - Arthritis [Unknown]
  - Deformity [Not Recovered/Not Resolved]
  - Hypersomnia [Not Recovered/Not Resolved]
  - Tension [Unknown]
  - Paraesthesia [Unknown]
  - Product use in unapproved indication [Unknown]
  - Anosmia [Not Recovered/Not Resolved]
  - Weight decreased [Not Recovered/Not Resolved]
  - Abnormal behaviour [Recovered/Resolved]
  - Epilepsy [Unknown]
  - Contusion [Recovered/Resolved]
  - Pain [Unknown]
  - Hyperphagia [Not Recovered/Not Resolved]
  - Dissociation [Unknown]
  - Tooth loss [Recovered/Resolved]
  - Influenza [Not Recovered/Not Resolved]
  - Cough [Not Recovered/Not Resolved]
  - Decreased appetite [Not Recovered/Not Resolved]

NARRATIVE: CASE EVENT DATE: 201109
